FAERS Safety Report 5212951-9 (Version None)
Quarter: 2007Q1

REPORT INFORMATION
  Report Type: 
  Country: None (occurrence: None)
  Receive Date: 20070119
  Receipt Date: 20070109
  Transmission Date: 20070707
  Serious: Yes (Hospitalization)
  Sender: FDA-Public Use
  Company Number: PHRM2007FR00485

PATIENT
  Age: 67 Year
  Sex: Female

DRUGS (1)
  1. ZOMETA [Suspect]
     Indication: METASTASES TO BONE
     Dosage: 4 MG, QMO
     Route: 042
     Dates: start: 20030801, end: 20050101

REACTIONS (7)
  - OSTEITIS [None]
  - OSTEOMYELITIS [None]
  - OSTEOSCLEROSIS [None]
  - PAIN IN JAW [None]
  - SCINTIGRAPHY [None]
  - TOOTH EXTRACTION [None]
  - WOUND DEBRIDEMENT [None]
